FAERS Safety Report 16324999 (Version 1)
Quarter: 2019Q2

REPORT INFORMATION
  Report Type: Spontaneous
  Country: US (occurrence: US)
  Receive Date: 20190516
  Receipt Date: 20190516
  Transmission Date: 20190711
  Serious: Yes (Other)
  Sender: FDA-Public Use
  Company Number: None

PATIENT
  Age: 49 Year
  Sex: Female
  Weight: 103.5 kg

DRUGS (6)
  1. VIIBRYD [Suspect]
     Active Substance: VILAZODONE HYDROCHLORIDE
     Indication: DEPRESSION
     Route: 048
     Dates: start: 20190415, end: 20190514
  2. B COMPLEX 1 QDAY [Concomitant]
     Dates: end: 20190516
  3. SPIRONOLACTONE 100 MG QDAY FOR ACNE [Concomitant]
     Dates: start: 20190102, end: 20190516
  4. SYNTHROID [Concomitant]
     Active Substance: LEVOTHYROXINE SODIUM
     Dates: start: 20160502, end: 20190516
  5. XOLAIR 300 MG Q8WK [Concomitant]
     Dates: start: 20160502, end: 20190516
  6. METFORMIN 500MG BID [Concomitant]
     Dates: start: 20190101, end: 20190516

REACTIONS (20)
  - Affective disorder [None]
  - Gastrooesophageal reflux disease [None]
  - Epistaxis [None]
  - Paranoia [None]
  - Mood swings [None]
  - Swelling of eyelid [None]
  - Insomnia [None]
  - Crying [None]
  - Nausea [None]
  - Suicidal ideation [None]
  - Nightmare [None]
  - Coordination abnormal [None]
  - Vision blurred [None]
  - Rapid eye movements sleep abnormal [None]
  - Gastritis [None]
  - Somnolence [None]
  - Blepharospasm [None]
  - Arthralgia [None]
  - Mental impairment [None]
  - Nasal congestion [None]

NARRATIVE: CASE EVENT DATE: 20190514
